FAERS Safety Report 18500742 (Version 1)
Quarter: 2020Q4

REPORT INFORMATION
  Report Type: Spontaneous
  Country: US (occurrence: US)
  Receive Date: 20201113
  Receipt Date: 20201113
  Transmission Date: 20210114
  Serious: Yes (Disabling)
  Sender: FDA-Public Use
  Company Number: None

PATIENT
  Age: 64 Year
  Sex: Male
  Weight: 89.1 kg

DRUGS (7)
  1. VASCEPA [Suspect]
     Active Substance: ICOSAPENT ETHYL
     Indication: BLOOD TRIGLYCERIDES INCREASED
     Dosage: ?          QUANTITY:2 CAPSULE(S);?
     Route: 048
     Dates: start: 20201108, end: 20201110
  2. ADDERALL [Concomitant]
     Active Substance: AMPHETAMINE ASPARTATE\AMPHETAMINE SULFATE\DEXTROAMPHETAMINE SACCHARATE\DEXTROAMPHETAMINE SULFATE
  3. CPAP MACHINE [Concomitant]
  4. FIBER SUPPLEMENT [Concomitant]
     Active Substance: DIETARY SUPPLEMENT
  5. PROBIOTICS [Concomitant]
     Active Substance: PROBIOTICS NOS
  6. DIGESTIVE ENZYMES [Concomitant]
     Active Substance: UNSPECIFIED INGREDIENT
  7. PREBIOTICS [Concomitant]

REACTIONS (3)
  - Arthralgia [None]
  - Myalgia [None]
  - Constipation [None]

NARRATIVE: CASE EVENT DATE: 20201109
